FAERS Safety Report 16538802 (Version 1)
Quarter: 2019Q3

REPORT INFORMATION
  Report Type: Spontaneous
  Country: BR (occurrence: BR)
  Receive Date: 20190708
  Receipt Date: 20190708
  Transmission Date: 20191004
  Serious: Yes (Other)
  Sender: FDA-Public Use
  Company Number: BR-ASTELLAS-2019US027336

PATIENT
  Age: 65 Year
  Sex: Female

DRUGS (4)
  1. PREDNISONE. [Concomitant]
     Active Substance: PREDNISONE
     Indication: RENAL TRANSPLANT
     Route: 065
  2. TACROLIMUS. [Suspect]
     Active Substance: TACROLIMUS
     Dosage: 6 MG, ONCE DAILY (BLOOD TARGET LEVEL FROM 5 TO 8 NG/ML)
     Route: 065
  3. TACROLIMUS. [Suspect]
     Active Substance: TACROLIMUS
     Indication: RENAL TRANSPLANT
     Dosage: 7 MG, TWICE DAILY (BLOOD TARGET LEVEL FROM 5 TO 8 NG/ML)
     Route: 065
  4. MYCOPHENOLATE SODIUM [Suspect]
     Active Substance: MYCOPHENOLATE SODIUM
     Indication: RENAL TRANSPLANT
     Route: 065

REACTIONS (7)
  - Histology abnormal [Unknown]
  - Kidney transplant rejection [Unknown]
  - Renal transplant failure [Unknown]
  - Trichodysplasia spinulosa [Recovered/Resolved]
  - Human polyomavirus infection [Recovered/Resolved]
  - Complications of transplanted kidney [Unknown]
  - Renal failure [Unknown]
